FAERS Safety Report 7623939-2 (Version None)
Quarter: 2011Q3

REPORT INFORMATION
  Report Type: 
  Country: None (occurrence: None)
  Receive Date: 20110720
  Receipt Date: 20110719
  Transmission Date: 20111222
  Serious: No
  Sender: FDA-Public Use
  Company Number: US-PFIZER INC-2011163668

PATIENT
  Sex: Male
  Weight: 88.435 kg

DRUGS (9)
  1. LORTAB [Concomitant]
     Indication: MUSCULOSKELETAL PAIN
  2. PROZAC [Concomitant]
     Indication: DEPRESSION
     Dosage: 40 MG, DAILY
     Route: 048
  3. TOPROL-XL [Concomitant]
     Indication: CARDIAC DISORDER
     Dosage: 100 MG, DAILY
     Route: 048
  4. CHANTIX [Suspect]
     Indication: SMOKING CESSATION THERAPY
     Dosage: 0.5 MG, 2X/DAY
     Route: 048
     Dates: start: 20110713
  5. LISINOPRIL [Concomitant]
     Indication: CARDIAC DISORDER
     Dosage: 20 MG, DAILY
     Route: 048
  6. CHANTIX [Suspect]
     Dosage: UNK
     Route: 048
  7. PLAVIX [Concomitant]
     Indication: CARDIAC DISORDER
     Dosage: 75 MG, DAILY
     Route: 048
  8. LORTAB [Concomitant]
     Indication: NECK PAIN
     Dosage: 10 MG, 4X/DAY
     Route: 048
  9. ASPIRIN [Concomitant]
     Indication: CARDIAC DISORDER
     Dosage: 81 MG, DAILY
     Route: 048

REACTIONS (1)
  - PRURITUS [None]
